FAERS Safety Report 17768297 (Version 2)
Quarter: 2020Q2

REPORT INFORMATION
  Report Type: Spontaneous
  Country: US (occurrence: US)
  Receive Date: 20200511
  Receipt Date: 20200623
  Transmission Date: 20200714
  Serious: Yes (Other)
  Sender: FDA-Public Use
  Company Number: US-009507513-2005USA002492

PATIENT
  Age: 73 Year
  Sex: Male

DRUGS (1)
  1. KEYTRUDA [Suspect]
     Active Substance: PEMBROLIZUMAB
     Indication: SQUAMOUS CELL CARCINOMA OF SKIN
     Dosage: 250 MILLIGRAM, Q3W
     Route: 042
     Dates: start: 201806

REACTIONS (3)
  - Arthralgia [Unknown]
  - Myalgia [Unknown]
  - Porokeratosis [Recovering/Resolving]

NARRATIVE: CASE EVENT DATE: 201901
